FAERS Safety Report 7964269 (Version 2)
Quarter: 2013Q4

REPORT INFORMATION
  Report Type: Spontaneous
  Country: JP (occurrence: JP)
  Receive Date: 20110527
  Receipt Date: 20131028
  Transmission Date: 20140711
  Serious: Yes (Death, Other)
  Sender: FDA-Public Use
  Company Number: JP-SANOFI-AVENTIS-2011SA031316

PATIENT
  Age: 50 Year
  Sex: Male

DRUGS (8)
  1. ZOLEDRONIC ACID [Suspect]
     Indication: METASTASES TO BONE
     Route: 065
  2. CARBOPLATIN [Suspect]
     Indication: ADENOCARCINOMA
     Dosage: AUC=5
     Route: 065
  3. CARBOPLATIN [Suspect]
     Indication: METASTASES TO BONE
     Dosage: AUC=5
     Route: 065
  4. PACLITAXEL [Suspect]
     Indication: ADENOCARCINOMA
     Route: 065
  5. PACLITAXEL [Suspect]
     Indication: METASTASES TO BONE
     Route: 065
  6. DOCETAXEL [Suspect]
     Indication: ADENOCARCINOMA
     Route: 065
  7. DOCETAXEL [Suspect]
     Indication: METASTASES TO BONE
     Route: 065
  8. THERAPEUTIC RADIOPHARMACEUTICALS [Concomitant]
     Indication: METASTASIS

REACTIONS (2)
  - Disease progression [Fatal]
  - Lung disorder [Unknown]
